FAERS Safety Report 13304254 (Version 5)
Quarter: 2017Q3

REPORT INFORMATION
  Report Type: Report from Study
  Country: JP (occurrence: JP)
  Receive Date: 20170308
  Receipt Date: 20170809
  Transmission Date: 20171127
  Serious: Yes (Hospitalization, Disabling, Other)
  Sender: FDA-Public Use
  Company Number: JP-BRISTOL-MYERS SQUIBB COMPANY-BMS-2017-019103

PATIENT
  Age: 76 Year
  Sex: Female
  Weight: 46.8 kg

DRUGS (7)
  1. REBAMIPIDE [Concomitant]
     Active Substance: REBAMIPIDE
     Indication: MALIGNANT MELANOMA
     Dosage: 100 MG, UNK
     Route: 048
     Dates: start: 20170106
  2. TRAMCET [Concomitant]
     Active Substance: ACETAMINOPHEN\TRAMADOL
     Indication: MALIGNANT MELANOMA
     Dosage: UNK
     Route: 048
     Dates: start: 20170203
  3. IPILIMUMAB [Suspect]
     Active Substance: IPILIMUMAB
     Indication: MALIGNANT MELANOMA
     Dosage: 3 MG, Q2WK
     Route: 041
     Dates: start: 20170106
  4. LOXOPROFEN SODIUM [Concomitant]
     Active Substance: LOXOPROFEN SODIUM
     Indication: MALIGNANT MELANOMA
     Dosage: 60 MG, UNK
     Route: 048
     Dates: start: 20170106
  5. THYRADIN-S [Concomitant]
     Active Substance: LEVOTHYROXINE
     Indication: THYROID DISORDER
     Dosage: 12.5 ?G, UNK
     Route: 048
     Dates: start: 20150501
  6. IPILIMUMAB [Suspect]
     Active Substance: IPILIMUMAB
     Indication: PRODUCT USED FOR UNKNOWN INDICATION
     Dosage: 3 MG/KG, Q2WK
     Route: 041
     Dates: start: 20170127
  7. METOCLOPRAMIDE. [Concomitant]
     Active Substance: METOCLOPRAMIDE
     Indication: MALIGNANT MELANOMA
     Dosage: 5 MG, UNK
     Route: 048
     Dates: start: 20170203, end: 20170301

REACTIONS (4)
  - Malignant neoplasm progression [Unknown]
  - Hypoglycaemia [Unknown]
  - Cancer pain [Not Recovered/Not Resolved]
  - Delirium [Recovering/Resolving]

NARRATIVE: CASE EVENT DATE: 20170203
